FAERS Safety Report 9010757 (Version 2)
Quarter: 2013Q1

REPORT INFORMATION
  Report Type: Spontaneous
  Country: US (occurrence: US)
  Receive Date: 20130109
  Receipt Date: 20130329
  Transmission Date: 20140127
  Serious: Yes (Hospitalization)
  Sender: FDA-Public Use
  Company Number: US-B.I. PHARMACEUTICALS,INC./RIDGEFIELD-2012-BP-20876BP

PATIENT
  Age: 80 Year
  Sex: Male
  Weight: 120.2 kg

DRUGS (19)
  1. PRADAXA [Suspect]
     Indication: ANTICOAGULANT THERAPY
     Dosage: 300 MG
     Route: 048
     Dates: start: 20110815, end: 20110826
  2. PRADAXA [Suspect]
     Indication: CEREBROVASCULAR ACCIDENT PROPHYLAXIS
  3. PRADAXA [Suspect]
     Indication: ATRIAL FIBRILLATION
  4. GLYBURIDE [Concomitant]
     Dosage: 10 MG
     Route: 048
  5. TORSEMIDE [Concomitant]
     Dosage: 40 MG
     Route: 048
  6. GABAPENTIN [Concomitant]
     Dosage: 1800 MG
     Route: 048
  7. TEKTURNA [Concomitant]
     Dosage: 150 MG
     Route: 048
  8. LOSARTAN/HYDROCHLOROTHIAZIDE [Concomitant]
     Route: 048
  9. NITROGLYCERIN [Concomitant]
     Route: 048
  10. ALLOPURINOL [Concomitant]
     Dosage: 150 MG
     Route: 048
  11. FISH OIL [Concomitant]
     Dosage: 2000 MG
  12. MULTIVITAMIN [Concomitant]
     Route: 048
  13. FENOFIBRATE [Concomitant]
     Dosage: 54 MG
     Route: 048
  14. RANITIDINE HCL [Concomitant]
     Dosage: 300 MG
     Route: 048
  15. DOCUSATE SODIUM [Concomitant]
     Dosage: 300 MG
     Route: 048
  16. ASPIRIN [Concomitant]
     Dosage: 81 MG
  17. ISOSORBIDE MONONITRATE [Concomitant]
     Dosage: 60 MG
     Route: 048
  18. ROSUVASTATIN CALCIUM [Concomitant]
     Dosage: 10 MG
     Route: 048
  19. SOLIFENACIN SUCCINATE [Concomitant]
     Dosage: 5 MG
     Route: 048

REACTIONS (7)
  - Haemorrhage [Unknown]
  - Renal failure acute [Recovered/Resolved]
  - Anaemia [Unknown]
  - Haematuria [Unknown]
  - Upper gastrointestinal haemorrhage [Unknown]
  - Lower gastrointestinal haemorrhage [Unknown]
  - Coagulopathy [Unknown]
